FAERS Safety Report 7106628-2 (Version None)
Quarter: 2010Q4

REPORT INFORMATION
  Report Type: 
  Country: None (occurrence: None)
  Receive Date: 20101116
  Receipt Date: 20101112
  Transmission Date: 20110411
  Serious: No
  Sender: FDA-Public Use
  Company Number: US-ABBOTT-10P-163-0685105-00

PATIENT
  Sex: Male
  Weight: 86.26 kg

DRUGS (1)
  1. SIMCOR [Suspect]
     Indication: HIGH DENSITY LIPOPROTEIN DECREASED
     Dates: start: 20101019, end: 20101026

REACTIONS (2)
  - DYSPEPSIA [None]
  - INSOMNIA [None]
